FAERS Safety Report 6586668-2 (Version None)
Quarter: 2010Q1

REPORT INFORMATION
  Report Type: 
  Country: None (occurrence: None)
  Receive Date: 20100217
  Receipt Date: 20090717
  Transmission Date: 20100710
  Serious: No
  Sender: FDA-Public Use
  Company Number: US-ALLERGAN-0909191US

PATIENT
  Age: 29 Year
  Sex: Female

DRUGS (2)
  1. BOTOX COSMETIC [Suspect]
     Indication: SKIN WRINKLING
     Dosage: UNK, SINGLE
     Route: 030
  2. EMLA [Suspect]
     Indication: LOCAL ANAESTHESIA
     Dosage: UNK, SINGLE
     Route: 061

REACTIONS (4)
  - DERMATITIS CONTACT [None]
  - INJECTION SITE DERMATITIS [None]
  - INJECTION SITE PRURITUS [None]
  - INJECTION SITE SWELLING [None]
